FAERS Safety Report 12978844 (Version 1)
Quarter: 2016Q4

REPORT INFORMATION
  Report Type: Spontaneous
  Country: FR (occurrence: FR)
  Receive Date: 20161128
  Receipt Date: 20161128
  Transmission Date: 20170207
  Serious: Yes (Hospitalization)
  Sender: FDA-Public Use
  Company Number: FR-PFIZER INC-2016541799

PATIENT
  Age: 34 Year
  Sex: Male

DRUGS (4)
  1. TAZOCILLINE [Suspect]
     Active Substance: PIPERACILLIN SODIUM\TAZOBACTAM SODIUM
     Indication: CHOLECYSTITIS ACUTE
     Dosage: UNK
     Route: 042
     Dates: start: 20150224, end: 20150228
  2. FLAGYL [Suspect]
     Active Substance: METRONIDAZOLE\METRONIDAZOLE HYDROCHLORIDE
     Indication: CHOLECYSTITIS ACUTE
     Dosage: UNK
     Route: 048
     Dates: start: 20150224, end: 20150303
  3. AMIKACIN MYLAN [Suspect]
     Active Substance: AMIKACIN
     Indication: CHOLECYSTITIS ACUTE
     Dosage: UNK
     Route: 042
     Dates: start: 20150224, end: 20150228
  4. OFLOCET /00731801/ [Suspect]
     Active Substance: OFLOXACIN
     Indication: CHOLECYSTITIS ACUTE
     Dosage: UNK
     Route: 048
     Dates: start: 20150228, end: 20150303

REACTIONS (2)
  - Hypersensitivity vasculitis [Recovered/Resolved]
  - Arthralgia [Recovered/Resolved]

NARRATIVE: CASE EVENT DATE: 20150302
